FAERS Safety Report 5051592-3 (Version None)
Quarter: 2006Q3

REPORT INFORMATION
  Report Type: 
  Country: None (occurrence: None)
  Receive Date: 20060711
  Receipt Date: 20060621
  Transmission Date: 20061208
  Serious: Yes (Hospitalization)
  Sender: FDA-Public Use
  Company Number: US200606003330

PATIENT
  Age: 69 Year
  Sex: Female
  Weight: 71.7 kg

DRUGS (10)
  1. ZYPREXA [Suspect]
     Indication: BIPOLAR DISORDER
     Dosage: SEE IMAGE
     Route: 048
     Dates: start: 19980101
  2. LITHIUM CARBONATE [Concomitant]
  3. VALPROIC ACID [Concomitant]
  4. NEXIUM [Concomitant]
  5. CALCIUM CARBONATE [Concomitant]
  6. ACTONEL [Concomitant]
  7. ZYRTEC [Concomitant]
  8. MOBIC [Concomitant]
  9. C-VITAMIN (ASCORBIC ACID) [Concomitant]
  10. TRAMADOL HCL [Concomitant]

REACTIONS (10)
  - AORTIC DISORDER [None]
  - BALANCE DISORDER [None]
  - CALCINOSIS [None]
  - CANDIDIASIS [None]
  - CARDIAC FUNCTION TEST ABNORMAL [None]
  - DRY MOUTH [None]
  - FALL [None]
  - PRESCRIBED OVERDOSE [None]
  - TREMOR [None]
  - URINARY TRACT INFECTION [None]
